FAERS Safety Report 5327654-X (Version None)
Quarter: 2007Q2

REPORT INFORMATION
  Report Type: 
  Country: None (occurrence: None)
  Receive Date: 20070517
  Receipt Date: 20070516
  Transmission Date: 20071010
  Serious: Yes (Other)
  Sender: FDA-Public Use
  Company Number: B0469772A

PATIENT
  Age: 16 Year
  Sex: Male

DRUGS (3)
  1. RELENZA [Suspect]
     Indication: INFLUENZA
     Dosage: 10MG TWICE PER DAY
     Route: 055
     Dates: start: 20070424, end: 20070427
  2. CALONAL [Concomitant]
     Indication: INFLUENZA
     Dosage: 1200MG PER DAY
     Route: 048
     Dates: start: 20070424, end: 20070428
  3. FLAVERIC [Concomitant]
     Indication: INFLUENZA
     Dosage: 20MG THREE TIMES PER DAY
     Route: 048
     Dates: start: 20070424, end: 20070504

REACTIONS (2)
  - AGGRESSION [None]
  - AGITATION [None]
